FAERS Safety Report 6534573-X (Version None)
Quarter: 2010Q1

REPORT INFORMATION
  Report Type: 
  Country: None (occurrence: None)
  Receive Date: 20100112
  Receipt Date: 20091201
  Transmission Date: 20100710
  Serious: Yes (Hospitalization, Disabling)
  Sender: FDA-Public Use
  Company Number: A0788097A

PATIENT
  Age: 53 Year
  Sex: Male

DRUGS (7)
  1. AVANDIA [Suspect]
     Dosage: 8MG PER DAY
     Route: 048
     Dates: start: 20010101, end: 20070529
  2. HYDROCHLOROTHIAZIDE [Concomitant]
  3. INSULIN [Concomitant]
  4. DILTIAZEM [Concomitant]
  5. CLONIDINE [Concomitant]
  6. METOPROLOL TARTRATE [Concomitant]
  7. METFORMIN HYDROCHLORIDE [Concomitant]

REACTIONS (4)
  - CARDIAC FAILURE CONGESTIVE [None]
  - CEREBROVASCULAR ACCIDENT [None]
  - CHEST DISCOMFORT [None]
  - TRANSIENT ISCHAEMIC ATTACK [None]
